FAERS Safety Report 5331084-4 (Version None)
Quarter: 2007Q2

REPORT INFORMATION
  Report Type: 
  Country: None (occurrence: None)
  Receive Date: 20070518
  Receipt Date: 20070518
  Transmission Date: 20071010
  Serious: No
  Sender: FDA-Public Use
  Company Number: None

PATIENT
  Sex: Male
  Weight: 97.5234 kg

DRUGS (1)
  1. CELEBREX [Suspect]
     Indication: SPONDYLOLISTHESIS
     Dosage: 100MG PO BID INJ
     Route: 048

REACTIONS (3)
  - CHEST DISCOMFORT [None]
  - COUGH [None]
  - OROPHARYNGEAL SWELLING [None]
